FAERS Safety Report 4446784-8 (Version None)
Quarter: 2004Q3

REPORT INFORMATION
  Report Type: 
  Country: None (occurrence: None)
  Receive Date: 20040910
  Receipt Date: 20040830
  Transmission Date: 20050211
  Serious: Yes (Other)
  Sender: FDA-Public Use
  Company Number: K200401327

PATIENT
  Age: 73 Year
  Sex: Female
  Weight: 95.2 kg

DRUGS (4)
  1. LEVOXYL [Suspect]
     Indication: HYPOTHYROIDISM
     Dosage: 150 MCG, QD,ORAL
     Route: 048
     Dates: start: 19990101
  2. AVAPRO [Concomitant]
  3. ALDACTONE [Concomitant]
  4. LASIX (FUROSEMIDE SODIUM, FUROSEMIDE) [Concomitant]

REACTIONS (3)
  - DYSGEUSIA [None]
  - PHARMACEUTICAL PRODUCT COMPLAINT [None]
  - WEIGHT INCREASED [None]
